FAERS Safety Report 14515340 (Version 1)
Quarter: 2018Q1

REPORT INFORMATION
  Report Type: Spontaneous
  Country: US (occurrence: US)
  Receive Date: 20180210
  Receipt Date: 20180210
  Transmission Date: 20180509
  Serious: No
  Sender: FDA-Public Use
  Company Number: US-B.I. PHARMACEUTICALS,INC./RIDGEFIELD-2018-BI-006869

PATIENT
  Age: 73 Year
  Sex: Male

DRUGS (7)
  1. LOSARTAN/HCTZ [Concomitant]
     Active Substance: HYDROCHLOROTHIAZIDE\LOSARTAN
     Indication: HYPERTENSION
  2. FLUTICASONE PROPIONATE. [Concomitant]
     Active Substance: FLUTICASONE PROPIONATE
     Indication: SINUS DISORDER
     Route: 045
  3. SPIRIVA [Suspect]
     Active Substance: TIOTROPIUM BROMIDE MONOHYDRATE
     Indication: CHRONIC OBSTRUCTIVE PULMONARY DISEASE
     Dosage: ONE CAPSULE A DAY;  FORM STRENGTH: 18 MCG; FORMULATION: CAPSULE? ADMINISTRATION CORRECT? YES ?ACTION
     Route: 055
     Dates: end: 20180202
  4. LOSARTAN/HCTZ [Concomitant]
     Active Substance: HYDROCHLOROTHIAZIDE\LOSARTAN
     Indication: FLUID RETENTION
     Dosage: UNIT DOSE AND DAILY DOSE: 50 MG /12.5 MG;
     Route: 048
  5. FINESTRIDE [Concomitant]
     Indication: PROSTATIC DISORDER
     Dosage: ONE TABLET DAILY;  FORM STRENGTH: 5 MG; FORMULATION: TABLET
     Route: 048
  6. ATORVASTATIN [Concomitant]
     Active Substance: ATORVASTATIN
     Indication: BLOOD CHOLESTEROL INCREASED
     Dosage: ONE TABLET DAILY;  FORM STRENGTH: 20 MG; FORMULATION: TABLET
     Route: 048
  7. ASPIRIN. [Concomitant]
     Active Substance: ASPIRIN
     Indication: SUPPLEMENTATION THERAPY
     Dosage: ONE TABLET A DAY;  FORM STRENGTH: 81 MG; FORMULATION: TABLET
     Route: 048

REACTIONS (2)
  - Nasal congestion [Not Recovered/Not Resolved]
  - Epistaxis [Recovered/Resolved]

NARRATIVE: CASE EVENT DATE: 20180202
